FAERS Safety Report 21272123 (Version 3)
Quarter: 2022Q4

REPORT INFORMATION
  Report Type: Report from Study
  Country: CA (occurrence: CA)
  Receive Date: 20220830
  Receipt Date: 20221110
  Transmission Date: 20230113
  Serious: Yes (Other)
  Sender: FDA-Public Use
  Company Number: CA-BRISTOL-MYERS SQUIBB COMPANY-2022-094004

PATIENT
  Age: 83 Year
  Sex: Female

DRUGS (2)
  1. REBLOZYL [Suspect]
     Active Substance: LUSPATERCEPT-AAMT
     Indication: Myelodysplastic syndrome
     Dosage: 1.0 MG, 1/3 WEEKS
     Route: 048
     Dates: start: 20211220
  2. REBLOZYL [Suspect]
     Active Substance: LUSPATERCEPT-AAMT
     Dosage: 1/3 WEEKS
     Route: 048
     Dates: start: 20220107

REACTIONS (1)
  - Haemoglobin abnormal [Recovering/Resolving]
